FAERS Safety Report 9045153 (Version 1)
Quarter: 2013Q1

REPORT INFORMATION
  Report Type: Report from Study
  Country: US (occurrence: US)
  Receive Date: 20130130
  Receipt Date: 20130130
  Transmission Date: 20140127
  Serious: No
  Sender: FDA-Public Use
  Company Number: US-ABBOTT-12P-163-0969872-00

PATIENT
  Sex: Female
  Weight: 107.14 kg

DRUGS (11)
  1. HUMIRA 40 MG/0.8 ML PEN [Suspect]
     Indication: RHEUMATOID ARTHRITIS
     Dates: start: 2006, end: 201203
  2. HUMIRA 40 MG/0.8 ML PEN [Suspect]
     Dates: start: 201207
  3. METHOTREXATE [Concomitant]
     Indication: RHEUMATOID ARTHRITIS
  4. FOLIC ACID [Concomitant]
     Indication: RHEUMATOID ARTHRITIS
  5. PROTONIX [Concomitant]
     Indication: SUPPLEMENTATION THERAPY
  6. PRO-AIR [Concomitant]
     Indication: ASTHMA
  7. ADVAIR [Concomitant]
     Indication: ASTHMA
  8. SUMATRIPTAN SUCCINATE [Concomitant]
     Indication: MIGRAINE
  9. VITAMIN B 12 [Concomitant]
     Indication: VITAMIN SUPPLEMENTATION
  10. CRESTOR [Concomitant]
     Indication: BLOOD CHOLESTEROL INCREASED
  11. SERTRALINE HCL [Concomitant]
     Indication: DEPRESSION

REACTIONS (1)
  - Respiratory tract infection [Recovered/Resolved]
